FAERS Safety Report 4721020-3 (Version None)
Quarter: 2005Q3

REPORT INFORMATION
  Report Type: 
  Country: None (occurrence: None)
  Receive Date: 20050721
  Receipt Date: 20040108
  Transmission Date: 20060218
  Serious: Yes (Hospitalization)
  Sender: FDA-Public Use
  Company Number: GB-MERCK-0401GBR00064

PATIENT
  Age: 68 Year
  Sex: Female
  Weight: 50 kg

DRUGS (6)
  1. SINGULAIR [Suspect]
     Indication: ASTHMA
     Route: 048
     Dates: start: 20030101, end: 20030814
  2. PREDNISOLONE [Suspect]
     Indication: ASTHMA
     Route: 065
  3. PREDNISOLONE [Suspect]
     Indication: CHRONIC OBSTRUCTIVE PULMONARY DISEASE
     Route: 065
  4. METFORMIN [Concomitant]
     Route: 065
  5. THEOPHYLLINE [Concomitant]
     Route: 065
  6. FLUTICASONE PROPIONATE [Concomitant]
     Route: 055

REACTIONS (1)
  - PERITONITIS BACTERIAL [None]
